FAERS Safety Report 5720845-5 (Version None)
Quarter: 2008Q2

REPORT INFORMATION
  Report Type: 
  Country: None (occurrence: None)
  Receive Date: 20080429
  Receipt Date: 20080425
  Transmission Date: 20081010
  Serious: Yes (Other)
  Sender: FDA-Public Use
  Company Number: PHRM2008FR01261

PATIENT
  Age: 62 Year
  Sex: Female
  Weight: 43 kg

DRUGS (7)
  1. TEGRETOL [Suspect]
     Indication: BIPOLAR DISORDER
     Dosage: 100 MG, BID
     Route: 048
     Dates: start: 20020415
  2. CARBAMAZEPINE [Suspect]
     Indication: BIPOLAR DISORDER
     Dosage: 100 MG, BID
     Route: 048
  3. TEGRETOL [Suspect]
     Indication: BIPOLAR DISORDER
     Dosage: 2 DF IN THE EVENING
     Route: 048
     Dates: start: 20020415
  4. LIBRAX [Concomitant]
     Indication: INSOMNIA
     Dosage: 2-3 DF IN THE EVENING
     Dates: start: 20020101
  5. FORLAX [Concomitant]
     Indication: CONSTIPATION
     Dosage: 1 DF DAILY
     Dates: start: 20020101
  6. SPASMINE [Concomitant]
     Indication: INSOMNIA
     Dosage: 3-4 DF PER DAY
     Dates: start: 20020101
  7. ACTONEL [Concomitant]
     Indication: OSTEOPOROSIS
     Dosage: 1 DF, QW
     Route: 048
     Dates: start: 20040101

REACTIONS (8)
  - ANGIOPATHY [None]
  - BIPOLAR DISORDER [None]
  - ECCHYMOSIS [None]
  - EYE HAEMORRHAGE [None]
  - HYPERCHOLESTEROLAEMIA [None]
  - PHOTOPSIA [None]
  - RETINAL DETACHMENT [None]
  - WHITE BLOOD CELL COUNT DECREASED [None]
